FAERS Safety Report 10066560 (Version 1)
Quarter: 2014Q2

REPORT INFORMATION
  Report Type: Spontaneous
  Country: US (occurrence: None)
  Receive Date: 20140401
  Receipt Date: 20140401
  Transmission Date: 20141212
  Serious: Yes (Other)
  Sender: FDA-Public Use
  Company Number: PHEH2013US0011472

PATIENT
  Age: 90 Year
  Sex: Female

DRUGS (3)
  1. EXELON PATCH [Suspect]
     Route: 062
  2. ADVEL (IBUPROFEN) [Concomitant]
  3. UNSPECIFIED INGREDIENT [Concomitant]

REACTIONS (4)
  - Hip fracture [None]
  - Fall [None]
  - Amnesia [None]
  - Urinary tract infection [None]
